FAERS Safety Report 17346211 (Version 2)
Quarter: 2020Q2

REPORT INFORMATION
  Report Type: Report from Study
  Country: US (occurrence: US)
  Receive Date: 20200129
  Receipt Date: 20200421
  Transmission Date: 20200713
  Serious: Yes (Death, Hospitalization)
  Sender: FDA-Public Use
  Company Number: US-EXELIXIS-CABO-19025082

PATIENT
  Age: 75 Year
  Sex: Female

DRUGS (3)
  1. CABOMETYX [Suspect]
     Active Substance: CABOZANTINIB S-MALATE
     Indication: RENAL CELL CARCINOMA
     Dosage: 20 MG, QD(AM WITHOUT FOOD
     Route: 048
     Dates: start: 20191012
  2. MUPIROCIN. [Concomitant]
     Active Substance: MUPIROCIN
  3. AMIODARONE [Concomitant]
     Active Substance: AMIODARONE

REACTIONS (6)
  - Blood pressure increased [Recovering/Resolving]
  - Blood pressure fluctuation [Not Recovered/Not Resolved]
  - Death [Fatal]
  - Blood magnesium decreased [Unknown]
  - Epistaxis [Unknown]
  - Constipation [Recovered/Resolved]

NARRATIVE: CASE EVENT DATE: 20191226
